FAERS Safety Report 8846144 (Version 1)
Quarter: 2012Q4

REPORT INFORMATION
  Report Type: 
  Country: TW (occurrence: TW)
  Receive Date: 20121017
  Receipt Date: 20121017
  Transmission Date: 20130627
  Serious: Yes (Other)
  Sender: FDA-Public Use
  Company Number: TW-JNJFOC-20121006070

PATIENT

DRUGS (3)
  1. TOPIRAMATE [Suspect]
     Indication: PERIODIC LIMB MOVEMENT DISORDER
     Route: 048
  2. MADOPAR [Concomitant]
     Indication: PERIODIC LIMB MOVEMENT DISORDER
     Route: 065
  3. RIVOTRIL [Concomitant]
     Indication: PERIODIC LIMB MOVEMENT DISORDER
     Route: 065

REACTIONS (1)
  - Tardive dyskinesia [Unknown]
